FAERS Safety Report 7632552-2 (Version None)
Quarter: 2011Q3

REPORT INFORMATION
  Report Type: 
  Country: None (occurrence: None)
  Receive Date: 20110725
  Receipt Date: 20101109
  Transmission Date: 20111222
  Serious: No
  Sender: FDA-Public Use
  Company Number: US-BRISTOL-MYERS SQUIBB COMPANY-15325285

PATIENT
  Age: 78 Year
  Sex: Male
  Weight: 82 kg

DRUGS (7)
  1. DILANTIN [Concomitant]
  2. COREG [Concomitant]
  3. ENALAPRIL MALEATE [Concomitant]
  4. NEXIUM [Concomitant]
  5. COUMADIN [Suspect]
     Indication: ATRIAL FIBRILLATION
     Dosage: FOR 7YRS.START2MG ALTER WITH 3MG,DEC TO 2MG WITH 1MG WKEND,INC TO 2MG(5OCT) SAT,SUN:2MG
     Route: 048
  6. PANCREASE [Concomitant]
  7. LIPITOR [Concomitant]

REACTIONS (2)
  - PRODUCT COUNTERFEIT [None]
  - INTERNATIONAL NORMALISED RATIO FLUCTUATION [None]
